FAERS Safety Report 13114453 (Version 1)
Quarter: 2017Q1

REPORT INFORMATION
  Report Type: Report from Study
  Country: US (occurrence: US)
  Receive Date: 20170113
  Receipt Date: 20170113
  Transmission Date: 20170428
  Serious: Yes (Other)
  Sender: FDA-Public Use
  Company Number: US-BAYER-2017-004782

PATIENT
  Age: 87 Year
  Sex: Male

DRUGS (2)
  1. STIVARGA [Suspect]
     Active Substance: REGORAFENIB
     Indication: COLON CANCER
     Dosage: DOSE REDUCTION
  2. STIVARGA [Suspect]
     Active Substance: REGORAFENIB
     Indication: COLON CANCER
     Dosage: UNK
     Dates: start: 20161201

REACTIONS (8)
  - Eating disorder [None]
  - Anaemia [None]
  - Drug intolerance [None]
  - Carcinoembryonic antigen increased [None]
  - Weight decreased [None]
  - Palmar-plantar erythrodysaesthesia syndrome [None]
  - Decreased appetite [None]
  - Pain [None]
